FAERS Safety Report 24128297 (Version 1)
Quarter: 2024Q3

REPORT INFORMATION
  Report Type: Report from Study
  Country: US (occurrence: US)
  Receive Date: 20240723
  Receipt Date: 20240723
  Transmission Date: 20241017
  Serious: Yes (Other)
  Sender: GILEAD
  Company Number: US-GILEAD-2024-0681293

PATIENT
  Age: 5 Year
  Sex: Male

DRUGS (1)
  1. AZTREONAM LYSINE [Suspect]
     Active Substance: AZTREONAM LYSINE
     Indication: Cystic fibrosis
     Dosage: 75 MG, TID ( USE VIA ALTERA NEBULIZER 28 DAYS ON 28 DAYS OFF)
     Route: 055

REACTIONS (3)
  - Cystic fibrosis [Unknown]
  - Oral surgery [Unknown]
  - Off label use [Unknown]

NARRATIVE: CASE EVENT DATE: 20240709
